FAERS Safety Report 7364685-2 (Version None)
Quarter: 2011Q1

REPORT INFORMATION
  Report Type: 
  Country: None (occurrence: None)
  Receive Date: 20110321
  Receipt Date: 20110311
  Transmission Date: 20110831
  Serious: Yes (Hospitalization)
  Sender: FDA-Public Use
  Company Number: NL-GENZYME-RENA-1001126

PATIENT
  Age: 70 Year
  Sex: Male

DRUGS (2)
  1. RENAGEL [Suspect]
     Indication: HYPERPHOSPHATAEMIA
     Dosage: 2.4 G, QD
     Route: 048
     Dates: end: 20110301
  2. RENAGEL [Suspect]
     Dosage: 4.8 G, QD
     Route: 048
     Dates: start: 20110301

REACTIONS (4)
  - FINGER AMPUTATION [None]
  - DIABETIC COMA [None]
  - DECREASED APPETITE [None]
  - MASTICATION DISORDER [None]
